FAERS Safety Report 13989721 (Version 1)
Quarter: 2017Q3

REPORT INFORMATION
  Report Type: Spontaneous
  Country: US (occurrence: US)
  Receive Date: 20170920
  Receipt Date: 20170920
  Transmission Date: 20171128
  Serious: Yes (Other)
  Sender: FDA-Public Use
  Company Number: US-WEST-WARD PHARMACEUTICALS CORP.-US-H14001-17-03464

PATIENT
  Age: 60 Year
  Sex: Female

DRUGS (5)
  1. NOREPINEPHRINE. [Suspect]
     Active Substance: NOREPINEPHRINE
     Indication: MEAN ARTERIAL PRESSURE DECREASED
     Route: 041
  2. EPINEPHRINE. [Suspect]
     Active Substance: EPINEPHRINE
     Indication: MEAN ARTERIAL PRESSURE DECREASED
     Route: 041
  3. 5% DEXTROSE [Suspect]
     Active Substance: DEXTROSE
     Indication: MEDICATION DILUTION
     Route: 041
  4. PHENYLEPHRINE [Suspect]
     Active Substance: PHENYLEPHRINE\PHENYLEPHRINE HYDROCHLORIDE
     Indication: MEAN ARTERIAL PRESSURE DECREASED
     Route: 041
  5. VASOPRESSIN. [Suspect]
     Active Substance: VASOPRESSIN
     Indication: MEAN ARTERIAL PRESSURE DECREASED
     Route: 041

REACTIONS (2)
  - Hyponatraemia [Recovering/Resolving]
  - Product preparation error [Recovered/Resolved]
